FAERS Safety Report 8771064 (Version 2)
Quarter: 2012Q4

REPORT INFORMATION
  Report Type: 
  Country: US (occurrence: US)
  Receive Date: 20120906
  Receipt Date: 20120910
  Transmission Date: 20130627
  Serious: Yes (Hospitalization)
  Sender: FDA-Public Use
  Company Number: US-GILEAD-2012-0060788

PATIENT
  Sex: Female

DRUGS (3)
  1. LETAIRIS [Suspect]
     Indication: PULMONARY HYPERTENSION
     Dosage: UNK
     Dates: start: 20081007
  2. LETAIRIS [Suspect]
     Indication: SCLERODERMA
  3. EPOPROSTENOL SODIUM [Suspect]

REACTIONS (3)
  - Inflammation [Unknown]
  - Unevaluable event [Unknown]
  - Central venous catheterisation [Unknown]
